FAERS Safety Report 8555506-0 (Version None)
Quarter: 2012Q3

REPORT INFORMATION
  Report Type: 
  Country: None (occurrence: None)
  Receive Date: 20120731
  Receipt Date: 20110912
  Transmission Date: 20120928
  Serious: No
  Sender: FDA-Public Use
  Company Number: US-ASTRAZENECA-2011SE04782

PATIENT
  Age: 60 Year
  Sex: Female
  Weight: 64.4 kg

DRUGS (3)
  1. SEROQUEL [Suspect]
     Indication: DEPRESSION
     Route: 048
  2. TRAZODONE HCL [Concomitant]
  3. SEROQUEL [Suspect]
     Route: 048

REACTIONS (4)
  - DRUG DOSE OMISSION [None]
  - TREMOR [None]
  - CRYING [None]
  - MALAISE [None]
